FAERS Safety Report 5824278-2 (Version None)
Quarter: 2008Q3

REPORT INFORMATION
  Report Type: 
  Country: None (occurrence: None)
  Receive Date: 20080728
  Receipt Date: 20080530
  Transmission Date: 20090109
  Serious: Yes (Other)
  Sender: FDA-Public Use
  Company Number: IT-BAYER-200822846GPV

PATIENT
  Age: 58 Year
  Sex: Male

DRUGS (1)
  1. ASPIRIN [Suspect]
     Indication: INFLUENZA
     Dosage: TOTAL DAILY DOSE: 500 MG
     Route: 048
     Dates: start: 20080202, end: 20080202

REACTIONS (3)
  - BLOOD GLUCOSE INCREASED [None]
  - BRONCHOSPASM [None]
  - LYMPHOCYTE COUNT INCREASED [None]
